FAERS Safety Report 18086392 (Version 14)
Quarter: 2025Q2

REPORT INFORMATION
  Report Type: Spontaneous
  Country: US (occurrence: US)
  Receive Date: 20200729
  Receipt Date: 20250602
  Transmission Date: 20250717
  Serious: Yes (Hospitalization, Other)
  Sender: SANOFI AVENTIS
  Company Number: US-SA-2020SA196139

PATIENT
  Age: 21 Year
  Sex: Male
  Weight: 54.43 kg

DRUGS (29)
  1. FABRAZYME [Suspect]
     Active Substance: AGALSIDASE BETA
     Indication: Lipidosis
     Dosage: 50 MG, QOW
     Route: 041
     Dates: start: 20170916
  2. FABRAZYME [Suspect]
     Active Substance: AGALSIDASE BETA
     Indication: Fabry^s disease
  3. MIRTAZAPINE [Concomitant]
     Active Substance: MIRTAZAPINE
  4. ESCITALOPRAM [Concomitant]
     Active Substance: ESCITALOPRAM OXALATE
  5. ACETAMINOPHEN [Concomitant]
     Active Substance: ACETAMINOPHEN
  6. DIPHENHYDRAMINE [Concomitant]
     Active Substance: DIPHENHYDRAMINE
  7. SODIUM CHLORIDE [Concomitant]
     Active Substance: SODIUM CHLORIDE
  8. EPINEPHRINE [Concomitant]
     Active Substance: EPINEPHRINE
  9. VITAMIN D2 [Concomitant]
     Active Substance: ERGOCALCIFEROL
  10. QVAR [Concomitant]
     Active Substance: BECLOMETHASONE DIPROPIONATE
  11. CREON [Concomitant]
     Active Substance: PANCRELIPASE AMYLASE\PANCRELIPASE LIPASE\PANCRELIPASE PROTEASE
  12. ALLEGRA D [FEXOFENADINE HYDROCHLORIDE;PSEUDOEPHEDRINE HYDROCHLORIDE] [Concomitant]
  13. WATER FOR INJECTION [Concomitant]
     Active Substance: WATER
  14. BUPROPION [Concomitant]
     Active Substance: BUPROPION
  15. SODIUM CHLORIDE [Concomitant]
     Active Substance: SODIUM CHLORIDE
  16. SERTRALINE [Concomitant]
     Active Substance: SERTRALINE HYDROCHLORIDE
  17. ARIPIPRAZOLE [Concomitant]
     Active Substance: ARIPIPRAZOLE
  18. OMEPRAZOLE [Concomitant]
     Active Substance: OMEPRAZOLE
  19. PAXIL [Concomitant]
     Active Substance: PAROXETINE HYDROCHLORIDE
  20. STRATTERA [Concomitant]
     Active Substance: ATOMOXETINE HYDROCHLORIDE
  21. KLONOPIN [Concomitant]
     Active Substance: CLONAZEPAM
  22. KLONOPIN [Concomitant]
     Active Substance: CLONAZEPAM
  23. IMIPRAMINE PAMOATE [Concomitant]
     Active Substance: IMIPRAMINE PAMOATE
  24. CLONAZEPAM [Concomitant]
     Active Substance: CLONAZEPAM
  25. TRAZODONE HCL [Concomitant]
     Active Substance: TRAZODONE HYDROCHLORIDE
  26. STERILE WATER [Concomitant]
     Active Substance: WATER
  27. DIPHENHYDRAMINE HYDROCHLORIDE [Concomitant]
     Active Substance: DIPHENHYDRAMINE HYDROCHLORIDE
  28. PREGABALIN [Concomitant]
     Active Substance: PREGABALIN
  29. LISDEXAMFETAMINE DIMESYLATE [Concomitant]
     Active Substance: LISDEXAMFETAMINE DIMESYLATE

REACTIONS (14)
  - Pancreatitis relapsing [Recovered/Resolved]
  - Tenderness [Recovered/Resolved]
  - Pain [Recovered/Resolved]
  - Pancreatitis [Unknown]
  - Abdominal pain [Unknown]
  - Gastritis [Unknown]
  - Abdominal pain upper [Unknown]
  - Muscle spasms [Unknown]
  - Nausea [Unknown]
  - Vomiting [Unknown]
  - Illness [Unknown]
  - Feeling hot [Recovered/Resolved]
  - Nausea [Recovering/Resolving]
  - Asthenia [Recovering/Resolving]

NARRATIVE: CASE EVENT DATE: 20200721
